FAERS Safety Report 12462554 (Version 2)
Quarter: 2016Q3

REPORT INFORMATION
  Report Type: Spontaneous
  Country: FR (occurrence: FR)
  Receive Date: 20160614
  Receipt Date: 20160711
  Transmission Date: 20161109
  Serious: Yes (Other)
  Sender: FDA-Public Use
  Company Number: FR-BRISTOL-MYERS SQUIBB COMPANY-BMS-2016-044875

PATIENT
  Age: 76 Year
  Sex: Male
  Weight: 52 kg

DRUGS (6)
  1. DAFALGAN CODEINE [Concomitant]
     Active Substance: ACETAMINOPHEN\CODEINE PHOSPHATE
     Indication: SPINAL OSTEOARTHRITIS
     Dosage: 1 G, TID
     Route: 048
     Dates: start: 2014
  2. ULTIBRO [Concomitant]
     Active Substance: GLYCOPYRRONIUM\INDACATEROL
     Indication: CHRONIC OBSTRUCTIVE PULMONARY DISEASE
     Dosage: 1 DF, UNK
     Route: 065
     Dates: start: 2014
  3. INNOHEP [Concomitant]
     Active Substance: TINZAPARIN SODIUM
     Indication: DEEP VEIN THROMBOSIS
     Dosage: 0.5 ML, UNK
     Route: 058
     Dates: start: 2014
  4. NIVOLUMAB BMS [Suspect]
     Active Substance: NIVOLUMAB
     Indication: SQUAMOUS CELL CARCINOMA OF LUNG
     Dosage: 3 MG/KG, UNK
     Route: 042
     Dates: start: 2015
  5. BI-PROFENID [Concomitant]
     Active Substance: KETOPROFEN
     Indication: SPINAL OSTEOARTHRITIS
     Dosage: 1 TAB, BID
     Route: 048
     Dates: start: 2014
  6. EUPANTOL [Concomitant]
     Active Substance: PANTOPRAZOLE SODIUM
     Indication: PRODUCT USED FOR UNKNOWN INDICATION
     Route: 065

REACTIONS (3)
  - Bronchiectasis [Not Recovered/Not Resolved]
  - Bronchitis [Not Recovered/Not Resolved]
  - Bronchiolitis [Not Recovered/Not Resolved]

NARRATIVE: CASE EVENT DATE: 201605
